FAERS Safety Report 5906083-1 (Version None)
Quarter: 2008Q4

REPORT INFORMATION
  Report Type: 
  Country: None (occurrence: None)
  Receive Date: 20081002
  Receipt Date: 20080923
  Transmission Date: 20090506
  Serious: Yes (Hospitalization, Other)
  Sender: FDA-Public Use
  Company Number: PHEH2008US08542

PATIENT
  Age: 70 Year
  Sex: Male
  Weight: 72.562 kg

DRUGS (1)
  1. TEKTURNA [Suspect]
     Indication: HYPERTENSION
     Dosage: 150 MG, QD

REACTIONS (2)
  - DYSPNOEA [None]
  - SWELLING [None]
